FAERS Safety Report 26086930 (Version 1)
Quarter: 2025Q4

REPORT INFORMATION
  Report Type: Spontaneous
  Country: US (occurrence: None)
  Receive Date: 20251124
  Receipt Date: 20251124
  Transmission Date: 20260117
  Serious: Yes (Life-Threatening, Hospitalization, Other)
  Sender: FDA-CTU
  Company Number: None

PATIENT
  Age: 25 Year
  Sex: Female
  Weight: 63 kg

DRUGS (1)
  1. ZEPBOUND [Suspect]
     Active Substance: TIRZEPATIDE
     Indication: Off label use
     Dates: start: 20251020, end: 20251117

REACTIONS (3)
  - Vomiting [None]
  - Nausea [None]
  - Blood potassium decreased [None]

NARRATIVE: CASE EVENT DATE: 20251122
